FAERS Safety Report 8764799 (Version 1)
Quarter: 2012Q4

REPORT INFORMATION
  Report Type: Report from Study
  Country: IT (occurrence: IT)
  Receive Date: 20120831
  Receipt Date: 20120831
  Transmission Date: 20130627
  Serious: Yes (Hospitalization)
  Sender: FDA-Public Use
  Company Number: IT-ROCHE-1106422

PATIENT

DRUGS (5)
  1. AVASTIN [Suspect]
     Indication: RECTAL CANCER
     Route: 042
     Dates: start: 20120509, end: 20120620
  2. IRINOTECAN [Concomitant]
     Route: 042
     Dates: start: 20120509, end: 20120620
  3. FLUOROURACIL [Concomitant]
     Route: 042
     Dates: start: 20120509, end: 20120620
  4. FLUOROURACIL [Concomitant]
     Route: 041
     Dates: start: 20120621, end: 20120622
  5. LEDERFOLIN [Concomitant]
     Route: 042
     Dates: start: 20120509, end: 20120620

REACTIONS (3)
  - Rectal haemorrhage [Recovering/Resolving]
  - Abdominal pain [Recovering/Resolving]
  - Proctitis [Recovering/Resolving]
